FAERS Safety Report 20778149 (Version 1)
Quarter: 2022Q2

REPORT INFORMATION
  Report Type: Report from Study
  Country: US (occurrence: US)
  Receive Date: 20220503
  Receipt Date: 20220503
  Transmission Date: 20220721
  Serious: Yes (Death)
  Sender: FDA-Public Use
  Company Number: US-ELI_LILLY_AND_COMPANY-US202204013204

PATIENT

DRUGS (4)
  1. GEMCITABINE HYDROCHLORIDE [Suspect]
     Active Substance: GEMCITABINE HYDROCHLORIDE
     Indication: Pancreatic carcinoma metastatic
     Dosage: 1000 MG/M2, DAY 1,8 AND 15 OF EACH 28 DAY CYCLE
     Route: 042
  2. ABRAXANE [Concomitant]
     Active Substance: PACLITAXEL
     Indication: Pancreatic carcinoma metastatic
     Dosage: 125 MG/M2, DAY 1,8 AND 15 OF EACH 28 DAY CYCLE
     Route: 042
  3. KEYTRUDA [Concomitant]
     Active Substance: PEMBROLIZUMAB
     Indication: Pancreatic carcinoma metastatic
     Dosage: EVERY 42 DAYS STARTING ON DAY 8
     Route: 042
  4. SEA CD40 [Concomitant]
     Indication: Pancreatic carcinoma metastatic
     Dosage: 10 OR 30 UG/KG
     Route: 042

REACTIONS (1)
  - Septic shock [Fatal]
